FAERS Safety Report 24303482 (Version 1)
Quarter: 2024Q3

REPORT INFORMATION
  Report Type: Spontaneous
  Country: TW (occurrence: TW)
  Receive Date: 20240910
  Receipt Date: 20240910
  Transmission Date: 20241017
  Serious: Yes (Other)
  Sender: MYLAN
  Company Number: TW-MYLANLABS-2024M1082258

PATIENT
  Age: 55 Year
  Sex: Male

DRUGS (17)
  1. FLUOROURACIL [Suspect]
     Active Substance: FLUOROURACIL
     Indication: Colon cancer metastatic
     Dosage: UNK, 12 CYCLES; AS A PART OF MFOLFOX CHEMOTHERAPY REGIMEN
     Route: 065
  2. FLUOROURACIL [Suspect]
     Active Substance: FLUOROURACIL
     Indication: Salvage therapy
     Dosage: UNK, SYSTEMIC THERAPY; AS A PART OF FOLFIRI REGIMEN
     Route: 065
  3. OXALIPLATIN [Suspect]
     Active Substance: OXALIPLATIN
     Indication: Colon cancer metastatic
     Dosage: UNK, 12 CYCLES; AS A PART OF MFOLFOX CHEMOTHERAPY REGIMEN
     Route: 065
  4. LEUCOVORIN [Suspect]
     Active Substance: LEUCOVORIN\LEUCOVORIN CALCIUM
     Indication: Colon cancer metastatic
     Dosage: UNK, 12 CYCLES; AS A PART OF MFOLFOX CHEMOTHERAPY REGIMEN
     Route: 065
  5. LEUCOVORIN [Suspect]
     Active Substance: LEUCOVORIN\LEUCOVORIN CALCIUM
     Indication: Salvage therapy
     Dosage: UNK, SYSTEMIC THERAPY; AS A PART OF FOLFIRI REGIMEN
     Route: 065
  6. IRINOTECAN HYDROCHLORIDE [Suspect]
     Active Substance: IRINOTECAN HYDROCHLORIDE
     Indication: Colon cancer metastatic
     Dosage: UNK, SYSTEMIC THERAPY; AS A PART OF FOLFIRI REGIMEN
     Route: 065
  7. IRINOTECAN HYDROCHLORIDE [Suspect]
     Active Substance: IRINOTECAN HYDROCHLORIDE
     Indication: Salvage therapy
  8. BEVACIZUMAB [Suspect]
     Active Substance: BEVACIZUMAB
     Indication: Colon cancer metastatic
     Dosage: UNK
     Route: 065
  9. BEVACIZUMAB [Suspect]
     Active Substance: BEVACIZUMAB
     Indication: Salvage therapy
  10. TIPIRACIL HYDROCHLORIDE\TRIFLURIDINE [Suspect]
     Active Substance: TIPIRACIL HYDROCHLORIDE\TRIFLURIDINE
     Indication: Colon cancer metastatic
     Dosage: UNK
     Route: 065
  11. TIPIRACIL HYDROCHLORIDE\TRIFLURIDINE [Suspect]
     Active Substance: TIPIRACIL HYDROCHLORIDE\TRIFLURIDINE
     Indication: Salvage therapy
  12. REGORAFENIB [Suspect]
     Active Substance: REGORAFENIB
     Indication: Colon cancer metastatic
     Dosage: UNK
     Route: 065
  13. REGORAFENIB [Suspect]
     Active Substance: REGORAFENIB
     Indication: Salvage therapy
  14. PEMBROLIZUMAB [Concomitant]
     Active Substance: PEMBROLIZUMAB
     Indication: Colon cancer metastatic
     Dosage: 200 MILLIGRAM, Q3W
     Route: 065
  15. PEMBROLIZUMAB [Concomitant]
     Active Substance: PEMBROLIZUMAB
     Indication: Salvage therapy
  16. LENVATINIB [Concomitant]
     Active Substance: LENVATINIB
     Indication: Colon cancer metastatic
     Dosage: 20 MILLIGRAM, QD
     Route: 065
  17. LENVATINIB [Concomitant]
     Active Substance: LENVATINIB
     Indication: Salvage therapy

REACTIONS (1)
  - Treatment failure [Unknown]
